FAERS Safety Report 17574810 (Version 2)
Quarter: 2020Q1

REPORT INFORMATION
  Report Type: Spontaneous
  Country: GB (occurrence: GB)
  Receive Date: 20200324
  Receipt Date: 20200326
  Transmission Date: 20200409
  Serious: Yes (Life-Threatening)
  Sender: FDA-Public Use
  Company Number: GB-TEVA-2020-GB-1206854

PATIENT
  Age: 71 Year
  Sex: Female

DRUGS (9)
  1. ATORVASTATIN CALCIUM. [Concomitant]
     Active Substance: ATORVASTATIN CALCIUM
  2. METFORMIN HYDROCHLORIDE. [Concomitant]
     Active Substance: METFORMIN HYDROCHLORIDE
  3. ISOSORBIDE 5 MONONITRATE [Concomitant]
  4. BISOPROLOL FUMARATE. [Concomitant]
     Active Substance: BISOPROLOL FUMARATE
  5. CAPECITABINE. [Suspect]
     Active Substance: CAPECITABINE
     Route: 048
  6. NICORANDIL [Concomitant]
     Active Substance: NICORANDIL
  7. ACETYLSALICYLIC ACID [Concomitant]
     Active Substance: ASPIRIN
  8. FERROUS FUMARATE [Concomitant]
     Active Substance: FERROUS FUMARATE
  9. LOSARTAN. [Concomitant]
     Active Substance: LOSARTAN

REACTIONS (1)
  - Acute myocardial infarction [Recovering/Resolving]
